FAERS Safety Report 8158421-X (Version None)
Quarter: 2012Q1

REPORT INFORMATION
  Report Type: 
  Country: None (occurrence: None)
  Receive Date: 20120223
  Receipt Date: 20120212
  Transmission Date: 20120608
  Serious: Yes (Hospitalization)
  Sender: FDA-Public Use
  Company Number: CA-JNJFOC-20120206199

PATIENT
  Sex: Female
  Weight: 72 kg

DRUGS (6)
  1. MESALAMINE [Concomitant]
     Route: 065
  2. PREDNISONE TAB [Concomitant]
     Route: 065
  3. M.V.I. [Concomitant]
     Route: 065
  4. REMICADE [Suspect]
     Indication: CROHN'S DISEASE
     Route: 042
     Dates: start: 20110101
  5. PREVACID [Concomitant]
     Route: 065
  6. CALCIUM CITRATE WITH VITAMIN D [Concomitant]
     Route: 065

REACTIONS (1)
  - CROHN'S DISEASE [None]
